FAERS Safety Report 8591134-9 (Version None)
Quarter: 2012Q3

REPORT INFORMATION
  Report Type: 
  Country: None (occurrence: None)
  Receive Date: 20120813
  Receipt Date: 20120809
  Transmission Date: 20120928
  Serious: Yes (Other)
  Sender: FDA-Public Use
  Company Number: FI-ROCHE-711285

PATIENT
  Sex: Female

DRUGS (13)
  1. METHOTREXATE [Interacting]
     Indication: RHEUMATOID ARTHRITIS
     Dosage: DRUG REPORTED AS TREXAN (METHOTREXATE) WHICH WAS DISCONTINUED NOS.
     Route: 065
  2. PREDNISOLONE [Concomitant]
     Indication: RHEUMATOID ARTHRITIS
     Route: 048
  3. PREDNISOLONE [Concomitant]
     Route: 048
  4. ACTEMRA [Interacting]
     Indication: RHEUMATOID ARTHRITIS
     Dosage: TOTAL MONTHLY DOSE 760 MG.
     Route: 042
  5. LEVOTHYROXINE SODIUM [Concomitant]
     Indication: HYPOTHYROIDISM
  6. MABTHERA [Suspect]
     Dosage: FREQUENCY REPORTED AS :CYCLES OF TWO INFUSIONS GIVEN ON THE DAYS 1 AND 15.DRUG DISCONTINUED NOS.
     Route: 042
  7. MICARDIS [Concomitant]
     Indication: HYPERTENSION
  8. PANACOD [Suspect]
     Indication: PRODUCT USED FOR UNKNOWN INDICATION
  9. BISOPROLOL FUMARATE [Concomitant]
     Indication: HYPERTENSION
  10. DIFORMIN [Concomitant]
     Indication: DIABETES MELLITUS
     Route: 048
  11. MABTHERA [Suspect]
     Indication: RHEUMATOID ARTHRITIS
     Route: 042
  12. OXIKLORIN [Concomitant]
     Indication: RHEUMATOID ARTHRITIS
     Route: 048
  13. NITROFURANTOIN [Concomitant]

REACTIONS (5)
  - DIABETES MELLITUS [None]
  - HYPERCHOLESTEROLAEMIA [None]
  - DRUG INEFFECTIVE [None]
  - DRUG INTERACTION [None]
  - ALANINE AMINOTRANSFERASE INCREASED [None]
